FAERS Safety Report 16943649 (Version 1)
Quarter: 2019Q4

REPORT INFORMATION
  Report Type: Report from Study
  Country: US (occurrence: US)
  Receive Date: 20191022
  Receipt Date: 20191022
  Transmission Date: 20200122
  Serious: Yes (Other)
  Sender: FDA-Public Use
  Company Number: US-BIOGEN-2019BI00797150

PATIENT
  Age: 61 Year
  Sex: Female

DRUGS (1)
  1. TECFIDERA [Suspect]
     Active Substance: DIMETHYL FUMARATE
     Indication: MULTIPLE SCLEROSIS
     Route: 048
     Dates: start: 20190516

REACTIONS (5)
  - Headache [Unknown]
  - Chromaturia [Unknown]
  - Pruritus [Unknown]
  - Product dose omission [Unknown]
  - Hypertension [Unknown]

NARRATIVE: CASE EVENT DATE: 201910
